FAERS Safety Report 12406153 (Version 3)
Quarter: 2016Q3

REPORT INFORMATION
  Report Type: Spontaneous
  Country: US (occurrence: US)
  Receive Date: 20160526
  Receipt Date: 20160811
  Transmission Date: 20161109
  Serious: Yes (Other)
  Sender: FDA-Public Use
  Company Number: US-ASTELLAS-2016US011824

PATIENT
  Age: 87 Year
  Sex: Male

DRUGS (1)
  1. XTANDI [Suspect]
     Active Substance: ENZALUTAMIDE
     Indication: PROSTATE CANCER
     Route: 048
     Dates: start: 20160316, end: 20160325

REACTIONS (11)
  - Diarrhoea [Recovered/Resolved]
  - Upper limb fracture [Recovered/Resolved]
  - Nasal disorder [Not Recovered/Not Resolved]
  - Haematochezia [Recovered/Resolved]
  - Lacrimation increased [Unknown]
  - Lacrimation increased [Not Recovered/Not Resolved]
  - Fall [Recovered/Resolved]
  - Cerebral disorder [Recovering/Resolving]
  - Thinking abnormal [Unknown]
  - Visual acuity reduced [Unknown]
  - Decreased appetite [Unknown]

NARRATIVE: CASE EVENT DATE: 201603
